FAERS Safety Report 7249907-0 (Version None)
Quarter: 2011Q1

REPORT INFORMATION
  Report Type: 
  Country: None (occurrence: None)
  Receive Date: 20110128
  Receipt Date: 20100727
  Transmission Date: 20110831
  Serious: No
  Sender: FDA-Public Use
  Company Number: A0877985A

PATIENT
  Age: 59 Year
  Sex: Female

DRUGS (3)
  1. VITAMIN TAB [Concomitant]
  2. WELLBUTRIN XL [Suspect]
     Indication: MAJOR DEPRESSION
     Dosage: 150MG PER DAY
     Route: 048
     Dates: start: 20090401
  3. SPIRONOLACTONE [Concomitant]

REACTIONS (3)
  - ECZEMA [None]
  - CHAPPED LIPS [None]
  - BLEPHARITIS [None]
